FAERS Safety Report 9719768 (Version 3)
Quarter: 2014Q1

REPORT INFORMATION
  Report Type: Spontaneous
  Country: US (occurrence: US)
  Receive Date: 20131128
  Receipt Date: 20140116
  Transmission Date: 20141002
  Serious: No
  Sender: FDA-Public Use
  Company Number: US-B.I. PHARMACEUTICALS,INC./RIDGEFIELD-2013-BI-37989BP

PATIENT
  Sex: Female

DRUGS (2)
  1. COMBIVENT [Suspect]
     Dosage: STRENGTH: 20 MCG / 100 MCG;
     Route: 055
  2. COMBIVENT [Suspect]
     Dosage: STRENGTH: 18 MCG/103 MCG
     Route: 055

REACTIONS (5)
  - Arthritis [Unknown]
  - Dyspnoea [Unknown]
  - Discomfort [Unknown]
  - Drug effect delayed [Unknown]
  - Drug ineffective [Unknown]
